FAERS Safety Report 4340386-X (Version None)
Quarter: 2004Q2

REPORT INFORMATION
  Report Type: 
  Country: None (occurrence: None)
  Receive Date: 20040414
  Receipt Date: 20040402
  Transmission Date: 20050107
  Serious: Yes (Hospitalization)
  Sender: FDA-Public Use
  Company Number: 2004208070US

PATIENT
  Age: 50 Year
  Sex: Male

DRUGS (5)
  1. MYCOBUTIN [Suspect]
     Indication: TUBERCULOSIS
     Dates: start: 20030919, end: 20040118
  2. SUSTIVA [Suspect]
     Indication: HIV INFECTION
     Dosage: 600 MG, QD, ORAL
     Route: 048
     Dates: start: 20000614
  3. ZIAGEN [Suspect]
     Indication: HIV INFECTION
     Dosage: 300 MG, BID, ORAL
     Route: 048
     Dates: start: 20000614
  4. EPIVIR [Suspect]
     Indication: HIV INFECTION
     Dosage: 150 MG, BID  ORAL
     Route: 048
     Dates: start: 20000614
  5. PYRAZINAMIDE [Suspect]
     Indication: TUBERCULOSIS
     Dates: start: 20030919, end: 20040118

REACTIONS (2)
  - HEPATIC FAILURE [None]
  - TUBERCULIN TEST POSITIVE [None]
